FAERS Safety Report 16158962 (Version 2)
Quarter: 2020Q2

REPORT INFORMATION
  Report Type: Spontaneous
  Country: DK (occurrence: DK)
  Receive Date: 20190404
  Receipt Date: 20200622
  Transmission Date: 20200713
  Serious: Yes (Life-Threatening, Hospitalization)
  Sender: FDA-Public Use
  Company Number: PHHY2019DK076379

PATIENT
  Age: 59 Year
  Sex: Female

DRUGS (6)
  1. ACTILYSE [Suspect]
     Active Substance: ALTEPLASE
     Dosage: UNK
     Route: 042
     Dates: start: 20190313
  2. SERTRALINE [Concomitant]
     Active Substance: SERTRALINE HYDROCHLORIDE
     Indication: ANXIETY
     Dosage: STYRKE: 50 MG
     Route: 048
     Dates: start: 20170101
  3. LANSOPRAZOLE. [Concomitant]
     Active Substance: LANSOPRAZOLE
     Indication: GASTROOESOPHAGEAL REFLUX DISEASE
     Dosage: STYRKE: 30 MG
     Route: 048
     Dates: start: 20121220
  4. ENALAPRIL SANDOZ [Suspect]
     Active Substance: ENALAPRIL
     Indication: HYPERTENSION
     Dosage: STYRKE: 10 MG
     Route: 048
     Dates: start: 20170111
  5. PARACETAMOL [Concomitant]
     Active Substance: ACETAMINOPHEN
     Indication: PAIN
     Dosage: STYRKE: 500 MG
     Route: 048
     Dates: start: 2013
  6. ACTILYSE [Suspect]
     Active Substance: ALTEPLASE
     Indication: CEREBRAL INFARCTION
     Dosage: UNK
     Route: 042

REACTIONS (2)
  - Swollen tongue [Recovered/Resolved]
  - Angioedema [Recovering/Resolving]

NARRATIVE: CASE EVENT DATE: 20190313
